FAERS Safety Report 5971432-5 (Version None)
Quarter: 2008Q4

REPORT INFORMATION
  Report Type: 
  Country: None (occurrence: None)
  Receive Date: 20081130
  Receipt Date: 20080627
  Transmission Date: 20090506
  Serious: Yes (Hospitalization)
  Sender: FDA-Public Use
  Company Number: FR-PFIZER INC-2008100040

PATIENT
  Sex: Male
  Weight: 87 kg

DRUGS (5)
  1. SU-011,248 [Suspect]
     Indication: PROSTATE CANCER
     Route: 048
     Dates: start: 20080519
  2. FORLAX [Concomitant]
  3. MORPHINE [Concomitant]
  4. KARDEGIC [Concomitant]
     Dates: start: 20080415
  5. DURAGESIC-100 [Concomitant]

REACTIONS (1)
  - ANAL FISTULA [None]
